FAERS Safety Report 9534245 (Version 9)
Quarter: 2024Q4

REPORT INFORMATION
  Report Type: Spontaneous
  Country: GB (occurrence: GB)
  Receive Date: 20130918
  Receipt Date: 20241115
  Transmission Date: 20250115
  Serious: Yes (Life-Threatening, Hospitalization, Disabling, Congenital Anomaly, Other)
  Sender: VIIV
  Company Number: None

PATIENT

DRUGS (24)
  1. ZIDOVUDINE [Suspect]
     Active Substance: ZIDOVUDINE
     Indication: HIV infection
     Dosage: UNK
     Route: 064
  2. ZIDOVUDINE [Suspect]
     Active Substance: ZIDOVUDINE
     Dosage: UNK
     Route: 064
  3. TRUVADA [Suspect]
     Active Substance: EMTRICITABINE\TENOFOVIR DISOPROXIL FUMARATE
     Indication: HIV infection
     Dosage: UNK
     Route: 064
     Dates: start: 20070605, end: 20081023
  4. TRUVADA [Suspect]
     Active Substance: EMTRICITABINE\TENOFOVIR DISOPROXIL FUMARATE
     Indication: HIV infection
  5. NORVIR [Suspect]
     Active Substance: RITONAVIR
     Indication: HIV infection
     Dosage: 100 MG, QD
     Route: 064
     Dates: start: 20060905
  6. NORVIR [Suspect]
     Active Substance: RITONAVIR
     Indication: HIV infection
     Dosage: 200 MG, QD
     Route: 064
     Dates: start: 20060905, end: 20081022
  7. NORVIR [Suspect]
     Active Substance: RITONAVIR
     Dosage: 100 MG, QD
     Route: 064
     Dates: start: 20081023
  8. ISENTRESS [Suspect]
     Active Substance: RALTEGRAVIR POTASSIUM
     Indication: HIV infection
     Dosage: 400 MG, QD
     Route: 064
     Dates: start: 20081023, end: 20090221
  9. ISENTRESS [Suspect]
     Active Substance: RALTEGRAVIR POTASSIUM
     Indication: HIV infection
     Dosage: UNK, BID
     Route: 064
  10. PREZISTA [Suspect]
     Active Substance: DARUNAVIR ETHANOLATE
     Indication: HIV infection
     Dosage: 600 MG, BID
     Route: 064
     Dates: start: 20081023
  11. PREZISTA [Suspect]
     Active Substance: DARUNAVIR ETHANOLATE
     Indication: HIV infection
  12. INTELENCE [Suspect]
     Active Substance: ETRAVIRINE
     Indication: HIV infection
     Dosage: 500 MG, BID
     Route: 064
     Dates: start: 20081023
  13. INTELENCE [Suspect]
     Active Substance: ETRAVIRINE
     Indication: Antiretroviral therapy
  14. APTIVUS [Suspect]
     Active Substance: TIPRANAVIR
     Indication: HIV infection
     Dosage: 500 MG, BID
     Route: 064
     Dates: start: 20060905, end: 20081023
  15. APTIVUS [Suspect]
     Active Substance: TIPRANAVIR
     Indication: HIV infection
  16. RALTEGRAVIR [Suspect]
     Active Substance: RALTEGRAVIR
     Indication: Product used for unknown indication
     Dosage: 400 MG, QD
     Route: 064
     Dates: start: 20081023, end: 20090221
  17. TIPRANAVIR [Suspect]
     Active Substance: TIPRANAVIR
     Indication: Exposure during pregnancy
     Dosage: UNK
     Route: 064
     Dates: start: 20070605, end: 200810
  18. ETRAVIRINE [Suspect]
     Active Substance: ETRAVIRINE
     Indication: Product used for unknown indication
     Dosage: 100 MG, QD
     Route: 064
     Dates: start: 20081023
  19. PREDNISOLONE [Concomitant]
     Active Substance: PREDNISOLONE
     Indication: Product used for unknown indication
     Dosage: 25 MG, QD
     Route: 064
  20. OXYGEN [Concomitant]
     Active Substance: OXYGEN
     Indication: Product used for unknown indication
     Dosage: UNK
     Route: 064
  21. ENFUVIRTIDE [Concomitant]
     Active Substance: ENFUVIRTIDE
     Indication: Product used for unknown indication
     Dosage: UNK
     Route: 064
  22. NITROUS OXIDE [Concomitant]
     Active Substance: NITROUS OXIDE
     Indication: Product used for unknown indication
     Dosage: UNK
     Route: 064
  23. NOVORAPID [Concomitant]
     Active Substance: INSULIN ASPART
     Indication: Gestational diabetes
     Dosage: 200 MG, BID
     Route: 064
  24. ZIDOVUDINE [Concomitant]
     Active Substance: ZIDOVUDINE
     Indication: Product used for unknown indication
     Dosage: UNK
     Route: 064

REACTIONS (36)
  - Anencephaly [Unknown]
  - Umbilical cord abnormality [Unknown]
  - Congenital musculoskeletal disorder [Recovered/Resolved]
  - Lipodystrophy acquired [Not Recovered/Not Resolved]
  - Spina bifida [Unknown]
  - Congenital ectopic bladder [Unknown]
  - Neural tube defect [Unknown]
  - Bladder agenesis [Recovered/Resolved with Sequelae]
  - Exomphalos [Recovered/Resolved with Sequelae]
  - Congenital musculoskeletal disorder of spine [Unknown]
  - Cloacal exstrophy [Recovered/Resolved with Sequelae]
  - Tethered cord syndrome [Recovered/Resolved with Sequelae]
  - Genitalia external ambiguous [Recovered/Resolved with Sequelae]
  - Gastrointestinal malformation [Unknown]
  - Bladder agenesis [Unknown]
  - Gastrointestinal disorder congenital [Unknown]
  - Congenital musculoskeletal disorder of spine [Recovered/Resolved with Sequelae]
  - Anal atresia [Recovered/Resolved with Sequelae]
  - Congenital genital malformation [Recovered/Resolved with Sequelae]
  - Meningomyelocele [Recovered/Resolved with Sequelae]
  - Sepsis neonatal [Recovered/Resolved]
  - Meconium stain [Recovered/Resolved with Sequelae]
  - Blood iron decreased [Recovered/Resolved]
  - Erythema [Recovered/Resolved]
  - Congenital anomaly [Unknown]
  - Fibrosis [Unknown]
  - Meningomyelocele [Recovered/Resolved with Sequelae]
  - Caudal regression syndrome [Recovered/Resolved with Sequelae]
  - Lipodystrophy acquired [Unknown]
  - Premature baby [Recovered/Resolved]
  - Umbilical cord abnormality [Recovered/Resolved with Sequelae]
  - Musculoskeletal deformity [Recovered/Resolved with Sequelae]
  - Congenital ectopic bladder [Unknown]
  - Sepsis [Recovered/Resolved]
  - Musculoskeletal discomfort [Recovered/Resolved with Sequelae]
  - Foetal exposure during pregnancy [Recovered/Resolved]

NARRATIVE: CASE EVENT DATE: 20080614
